FAERS Safety Report 12206625 (Version 2)
Quarter: 2016Q1

REPORT INFORMATION
  Report Type: Spontaneous
  Country: DZ (occurrence: DZ)
  Receive Date: 20160324
  Receipt Date: 20160330
  Transmission Date: 20160526
  Serious: Yes (Hospitalization, Other)
  Sender: FDA-Public Use
  Company Number: DZ-009507513-1603DZA009553

PATIENT
  Age: 36 Year
  Sex: Female
  Weight: 92 kg

DRUGS (1)
  1. IMPLANON [Suspect]
     Active Substance: ETONOGESTREL
     Route: 058

REACTIONS (3)
  - Renal failure [Unknown]
  - Hypertension [Unknown]
  - Weight increased [Unknown]
